FAERS Safety Report 10672080 (Version 4)
Quarter: 2015Q3

REPORT INFORMATION
  Report Type: Spontaneous
  Country: BR (occurrence: BR)
  Receive Date: 20141223
  Receipt Date: 20150831
  Transmission Date: 20151125
  Serious: Yes (Hospitalization, Other)
  Sender: FDA-Public Use
  Company Number: BR-SA-2014SA173401

PATIENT
  Sex: Male
  Weight: 87 kg

DRUGS (7)
  1. NPH INSULIN [Suspect]
     Active Substance: INSULIN BEEF
     Indication: DIABETES MELLITUS
     Route: 065
  2. LANTUS SOLOSTAR [Suspect]
     Active Substance: INSULIN GLARGINE
     Indication: DIABETES MELLITUS
     Route: 058
  3. LANTUS SOLOSTAR [Suspect]
     Active Substance: INSULIN GLARGINE
     Indication: DIABETES MELLITUS
     Route: 058
     Dates: start: 2011, end: 201309
  4. SOLOSTAR [Concomitant]
     Active Substance: DEVICE
  5. LANTUS [Suspect]
     Active Substance: INSULIN GLARGINE
     Indication: DIABETES MELLITUS
     Dosage: DOSE: 20 IU^S IN THE MORNING AND 8 IU^S
     Route: 058
     Dates: start: 2013
  6. CLIKSTAR [Concomitant]
     Active Substance: CLIKSTAR
     Indication: DEVICE THERAPY
     Route: 058
  7. SOLOSTAR [Concomitant]
     Active Substance: DEVICE
     Dates: start: 2011, end: 201309

REACTIONS (6)
  - Drug administration error [Unknown]
  - Drug dose omission [Unknown]
  - Vascular occlusion [Unknown]
  - Blood glucose abnormal [Recovering/Resolving]
  - Hospitalisation [Unknown]
  - Visual acuity reduced [Not Recovered/Not Resolved]

NARRATIVE: CASE EVENT DATE: 201401
